FAERS Safety Report 11830820 (Version 2)
Quarter: 2016Q2

REPORT INFORMATION
  Report Type: Spontaneous
  Country: AR (occurrence: AR)
  Receive Date: 20151214
  Receipt Date: 20160402
  Transmission Date: 20160815
  Serious: Yes (Other)
  Sender: FDA-Public Use
  Company Number: AR-ACCORD-036200

PATIENT
  Age: 25 Year
  Sex: Male

DRUGS (3)
  1. VINCRISTINE [Suspect]
     Active Substance: VINCRISTINE
     Indication: ACUTE LYMPHOCYTIC LEUKAEMIA
     Dates: start: 200807
  2. MERCAPTOPURINE/MERCAPTOPURINE ANHYDROUS [Suspect]
     Active Substance: MERCAPTOPURINE
     Indication: ACUTE LYMPHOCYTIC LEUKAEMIA
     Dates: start: 200807
  3. METHOTREXATE [Suspect]
     Active Substance: METHOTREXATE
     Indication: ACUTE LYMPHOCYTIC LEUKAEMIA
     Dates: start: 200807

REACTIONS (5)
  - Oedema [Recovering/Resolving]
  - Osteomyelitis [Recovering/Resolving]
  - Aphasia [Recovering/Resolving]
  - Aspergillus infection [Recovering/Resolving]
  - Pneumonitis [Recovering/Resolving]
